FAERS Safety Report 13836976 (Version 1)
Quarter: 2017Q3

REPORT INFORMATION
  Report Type: Spontaneous
  Country: US (occurrence: US)
  Receive Date: 20170804
  Receipt Date: 20170804
  Transmission Date: 20171127
  Serious: No
  Sender: FDA-Public Use
  Company Number: US-ROCHE-1049906

PATIENT
  Age: 88 Year
  Sex: Female

DRUGS (1)
  1. BONIVA [Suspect]
     Active Substance: IBANDRONATE SODIUM
     Indication: OSTEOPOROSIS
     Route: 048
     Dates: end: 20111110

REACTIONS (7)
  - Influenza like illness [Unknown]
  - Muscle spasms [Not Recovered/Not Resolved]
  - Musculoskeletal pain [Not Recovered/Not Resolved]
  - Back pain [Unknown]
  - Tooth extraction [Not Recovered/Not Resolved]
  - Myalgia [Unknown]
  - Toothache [Not Recovered/Not Resolved]
